FAERS Safety Report 19066925 (Version 1)
Quarter: 2021Q1

REPORT INFORMATION
  Report Type: Spontaneous
  Country: US (occurrence: US)
  Receive Date: 20210329
  Receipt Date: 20210329
  Transmission Date: 20210420
  Serious: No
  Sender: FDA-Public Use
  Company Number: US-BLUEPRINT MEDICINES CORPORATION-SP-US-2021-000340

PATIENT
  Age: 66 Year
  Sex: Female

DRUGS (2)
  1. GAVRETO [Suspect]
     Active Substance: PRALSETINIB
     Indication: LUNG NEOPLASM MALIGNANT
     Route: 048
     Dates: start: 20210224
  2. GAVRETO [Suspect]
     Active Substance: PRALSETINIB
     Route: 048
     Dates: start: 20210224

REACTIONS (3)
  - Hypertension [Not Recovered/Not Resolved]
  - Incorrect dose administered [Unknown]
  - Back pain [Not Recovered/Not Resolved]

NARRATIVE: CASE EVENT DATE: 20210224
